FAERS Safety Report 6651300-6 (Version None)
Quarter: 2010Q1

REPORT INFORMATION
  Report Type: 
  Country: None (occurrence: None)
  Receive Date: 20100309
  Receipt Date: 20100129
  Transmission Date: 20100710
  Serious: No
  Sender: FDA-Public Use
  Company Number: 2010SP006263

PATIENT
  Age: 32 Year
  Sex: Female

DRUGS (6)
  1. SAPHRIS [Suspect]
     Indication: BIPOLAR II DISORDER
     Dosage: 10 MG; BID
     Dates: start: 20100107
  2. KLONOPIN [Concomitant]
  3. LAMICTAL CD [Concomitant]
  4. TRAZODONE [Concomitant]
  5. LEXAPRO [Concomitant]
  6. AMBIEN [Concomitant]

REACTIONS (2)
  - LETHARGY [None]
  - SOMNOLENCE [None]
